FAERS Safety Report 7779892-4 (Version None)
Quarter: 2011Q3

REPORT INFORMATION
  Report Type: 
  Country: None (occurrence: None)
  Receive Date: 20110927
  Receipt Date: 20110818
  Transmission Date: 20111222
  Serious: No
  Sender: FDA-Public Use
  Company Number: US-MYLANLABS-2011S1013019

PATIENT
  Age: 72 Year
  Sex: Female
  Weight: 81.01 kg

DRUGS (4)
  1. VYTORIN [Concomitant]
     Indication: CORONARY ARTERY DISEASE
     Dosage: 10MG/20MG
     Route: 048
  2. COREG CR [Concomitant]
     Indication: HYPERTENSION
     Route: 048
  3. PROPRANOLOL [Concomitant]
     Route: 048
  4. NIFEDIPINE [Suspect]
     Indication: HYPERTENSION
     Route: 048
     Dates: start: 20080101, end: 20110101

REACTIONS (2)
  - BLOOD PRESSURE FLUCTUATION [None]
  - DRUG EFFECT DECREASED [None]
